FAERS Safety Report 17580021 (Version 1)
Quarter: 2020Q1

REPORT INFORMATION
  Report Type: Spontaneous
  Country: SA (occurrence: SA)
  Receive Date: 20200325
  Receipt Date: 20200325
  Transmission Date: 20200409
  Serious: Yes (Death)
  Sender: FDA-Public Use
  Company Number: NVSC2020SA082678

PATIENT

DRUGS (1)
  1. CARBAMAZEPINE. [Suspect]
     Active Substance: CARBAMAZEPINE
     Indication: SEIZURE
     Dosage: 900 MG, QD
     Route: 065

REACTIONS (3)
  - Foetal growth restriction [Fatal]
  - Foetal death [Fatal]
  - Foetal exposure during pregnancy [Fatal]
